FAERS Safety Report 4519618-0 (Version None)
Quarter: 2004Q4

REPORT INFORMATION
  Report Type: 
  Country: None (occurrence: None)
  Receive Date: 20041123
  Receipt Date: 20041104
  Transmission Date: 20050328
  Serious: Yes (Other)
  Sender: FDA-Public Use
  Company Number: 601622

PATIENT
  Age: 44 Year
  Sex: Female
  Weight: 136.0791 kg

DRUGS (10)
  1. TISSEEL VH KIT [Suspect]
     Indication: KNEE ARTHROPLASTY
     Dosage: 5 ML; ONCE; TOPICAL
     Route: 061
     Dates: start: 20040406, end: 20040406
  2. NEURONTIN [Concomitant]
  3. POTASSIUM CHLORIDE [Concomitant]
  4. FUROSEMIDE [Concomitant]
  5. ELAVIL [Concomitant]
  6. AVANDIA [Concomitant]
  7. PREVACID [Concomitant]
  8. TOPRAL [Concomitant]
  9. FLEXERIL [Concomitant]
  10. WELLBUTRIN [Concomitant]

REACTIONS (5)
  - ARTHROFIBROSIS [None]
  - FALL [None]
  - JOINT RANGE OF MOTION DECREASED [None]
  - POSTOPERATIVE ADHESION [None]
  - SCAR [None]
